FAERS Safety Report 6164873-7 (Version None)
Quarter: 2009Q2

REPORT INFORMATION
  Report Type: 
  Country: None (occurrence: None)
  Receive Date: 20090423
  Receipt Date: 20090414
  Transmission Date: 20091009
  Serious: Yes (Hospitalization)
  Sender: FDA-Public Use
  Company Number: ET-ASTRAZENECA-2009AC01087

PATIENT
  Age: 26 Year
  Sex: Male

DRUGS (1)
  1. BUPIVACAINE [Suspect]
     Indication: SPINAL ANAESTHESIA
     Route: 037

REACTIONS (1)
  - MENINGITIS BACTERIAL [None]
